FAERS Safety Report 8394944-6 (Version None)
Quarter: 2012Q2

REPORT INFORMATION
  Report Type: 
  Country: None (occurrence: None)
  Receive Date: 20120530
  Receipt Date: 20111018
  Transmission Date: 20120825
  Serious: No
  Sender: FDA-Public Use
  Company Number: US-GLAXOSMITHKLINE-A0950307A

PATIENT
  Age: 72 Year
  Sex: Female

DRUGS (1)
  1. FLOLAN [Suspect]
     Indication: PULMONARY HYPERTENSION
     Dosage: 35NGKM UNKNOWN
     Route: 065
     Dates: start: 19990927

REACTIONS (2)
  - URINARY TRACT INFECTION [None]
  - ASTHENIA [None]
